FAERS Safety Report 7615703-5 (Version None)
Quarter: 2011Q3

REPORT INFORMATION
  Report Type: 
  Country: None (occurrence: None)
  Receive Date: 20110711
  Receipt Date: 20110630
  Transmission Date: 20111222
  Serious: Yes (Other)
  Sender: FDA-Public Use
  Company Number: LEO-2011-00555

PATIENT
  Age: 28 Year
  Sex: Female

DRUGS (1)
  1. INNOHEP [Suspect]
     Indication: THROMBOSIS PROPHYLAXIS
     Dosage: 14000 IU (0.7 ML),SUBCUTANEOUS
     Route: 058
     Dates: start: 20100501, end: 20110615

REACTIONS (4)
  - OSTEOPOROSIS [None]
  - SPINAL COMPRESSION FRACTURE [None]
  - MATERNAL EXPOSURE DURING PREGNANCY [None]
  - OSTEOPENIA [None]
